FAERS Safety Report 4947773-7 (Version None)
Quarter: 2006Q1

REPORT INFORMATION
  Report Type: 
  Country: None (occurrence: None)
  Receive Date: 20060314
  Receipt Date: 20060302
  Transmission Date: 20060701
  Serious: Yes (Other)
  Sender: FDA-Public Use
  Company Number: HQWYE242918JUL05

PATIENT
  Age: 59 Year
  Sex: Female
  Weight: 63.56 kg

DRUGS (3)
  1. PREMPRO [Suspect]
     Indication: HORMONE REPLACEMENT THERAPY
     Dosage: 0.625/2.5MG AND THE FREQUENCY WAS UNKNOWN, ORAL
     Route: 048
     Dates: start: 19970301, end: 20020101
  2. PREMARIN [Suspect]
     Indication: HORMONE REPLACEMENT THERAPY
     Dosage: 0.625MG AND THE FREQUENCY WAS UNKNOWN, ORAL
     Route: 048
     Dates: start: 19900301, end: 19970301
  3. PROVERA [Suspect]
     Indication: HORMONE REPLACEMENT THERAPY

REACTIONS (3)
  - CEREBROVASCULAR ACCIDENT [None]
  - COAGULOPATHY [None]
  - FACIAL PALSY [None]
